FAERS Safety Report 6674481-7 (Version None)
Quarter: 2010Q2

REPORT INFORMATION
  Report Type: 
  Country: None (occurrence: None)
  Receive Date: 20100409
  Receipt Date: 20100401
  Transmission Date: 20101027
  Serious: Yes (Hospitalization)
  Sender: FDA-Public Use
  Company Number: US-EISAI INC.-E3810-03674-SPO-US

PATIENT
  Age: 81 Year
  Sex: Female
  Weight: 81 kg

DRUGS (4)
  1. ACIPHEX [Suspect]
     Route: 048
     Dates: end: 20100101
  2. TRIAMTERENE [Concomitant]
  3. CRESTOR [Concomitant]
  4. OMEPRAZOLE [Concomitant]

REACTIONS (3)
  - ANXIETY [None]
  - CHEST PAIN [None]
  - DYSPNOEA [None]
